FAERS Safety Report 17675452 (Version 1)
Quarter: 2020Q2

REPORT INFORMATION
  Report Type: Spontaneous
  Country: US (occurrence: US)
  Receive Date: 20200416
  Receipt Date: 20200416
  Transmission Date: 20200714
  Serious: Yes (Hospitalization)
  Sender: FDA-Public Use
  Company Number: US-SA-2020SA097594

PATIENT
  Age: 41 Year
  Sex: Female
  Weight: 81.18 kg

DRUGS (2)
  1. DUPIXENT [Suspect]
     Active Substance: DUPILUMAB
     Indication: ASTHMA
     Dosage: 300 MG, QOW
     Route: 058
     Dates: start: 20191201
  2. COSENTYX [Concomitant]
     Active Substance: SECUKINUMAB

REACTIONS (5)
  - Drug ineffective [Unknown]
  - Wheezing [Unknown]
  - Influenza [Unknown]
  - Nausea [Unknown]
  - Pyrexia [Unknown]
